FAERS Safety Report 8366673-6 (Version None)
Quarter: 2012Q2

REPORT INFORMATION
  Report Type: 
  Country: None (occurrence: None)
  Receive Date: 20120517
  Receipt Date: 20120508
  Transmission Date: 20120825
  Serious: Yes (Hospitalization)
  Sender: FDA-Public Use
  Company Number: US-ASTRAZENECA-2012SE19792

PATIENT
  Age: 74 Year
  Sex: Male
  Weight: 99 kg

DRUGS (3)
  1. BRILINTA [Suspect]
     Indication: CORONARY ARTERY DISEASE
     Route: 048
     Dates: start: 20120226
  2. BRILINTA [Suspect]
     Indication: CORONARY ANGIOPLASTY
     Route: 048
     Dates: start: 20120226
  3. BRILINTA [Suspect]
     Indication: ACUTE MYOCARDIAL INFARCTION
     Route: 048
     Dates: start: 20120226

REACTIONS (3)
  - CARDIAC TAMPONADE [None]
  - PERICARDITIS [None]
  - PERICARDIAL EFFUSION [None]
